FAERS Safety Report 8252326-1 (Version None)
Quarter: 2012Q2

REPORT INFORMATION
  Report Type: 
  Country: None (occurrence: None)
  Receive Date: 20120402
  Receipt Date: 20110508
  Transmission Date: 20120825
  Serious: No
  Sender: FDA-Public Use
  Company Number: US-ABBOTT-11P-163-0804549-00

PATIENT
  Age: 72 Year
  Sex: Male
  Weight: 75 kg

DRUGS (3)
  1. TESTOSTERONE [Suspect]
     Dosage: DAILY DOSE: 5 GRAM(S)
     Route: 062
     Dates: start: 20110101
  2. TESTOSTERONE [Suspect]
     Indication: BLOOD TESTOSTERONE DECREASED
     Dosage: DAILY DOSE: 5 GRAM(S)
     Route: 062
     Dates: start: 20090101, end: 20110101
  3. MELOXICAM [Concomitant]
     Indication: ARTHRITIS
     Dosage: DAILY DOSE:  UNKNOWN
     Route: 065

REACTIONS (2)
  - LOSS OF LIBIDO [None]
  - FATIGUE [None]
